FAERS Safety Report 8146472 (Version 2)
Quarter: 2012Q4

REPORT INFORMATION
  Report Type: Report from Study
  Country: JP (occurrence: JP)
  Receive Date: 20110921
  Receipt Date: 20121003
  Transmission Date: 20130627
  Serious: Yes (Hospitalization)
  Sender: FDA-Public Use
  Company Number: JP-ASTRAZENECA-2011SE51239

PATIENT
  Sex: Male

DRUGS (10)
  1. BLOPRESS [Suspect]
     Indication: HYPERTENSION
     Dosage: DAILY
     Route: 048
     Dates: start: 20110715, end: 20110824
  2. PLACEBO [Suspect]
     Indication: ACUTE CORONARY SYNDROME
     Route: 048
     Dates: start: 20110714, end: 20110824
  3. CLOPIDOGREL [Suspect]
     Indication: ACUTE CORONARY SYNDROME
     Route: 048
     Dates: start: 20110714, end: 20110824
  4. BAYASPIRIN [Suspect]
     Indication: ACUTE CORONARY SYNDROME
     Route: 048
     Dates: start: 20110714, end: 20110714
  5. BAYASPIRIN [Suspect]
     Indication: ACUTE CORONARY SYNDROME
     Route: 048
     Dates: start: 20110715
  6. TAKEPRON [Suspect]
     Indication: GASTRITIS PROPHYLAXIS
     Route: 048
     Dates: start: 20110715, end: 20110824
  7. MAGULAX [Suspect]
     Indication: CONSTIPATION PROPHYLAXIS
     Route: 048
     Dates: start: 20110715, end: 20110824
  8. ARTIST [Suspect]
     Indication: HYPERTENSION
     Route: 048
     Dates: start: 20110715, end: 20110715
  9. ARTIST [Suspect]
     Indication: HYPERTENSION
     Route: 048
     Dates: start: 20110716, end: 20110824
  10. RIZE [Concomitant]
     Indication: ANXIETY DISORDER
     Route: 048
     Dates: start: 20110715, end: 20110822

REACTIONS (5)
  - Melaena [Recovered/Resolved]
  - Chest discomfort [None]
  - Anaemia [None]
  - Gastritis [None]
  - Atrial fibrillation [None]
